FAERS Safety Report 21807110 (Version 1)
Quarter: 2023Q1

REPORT INFORMATION
  Report Type: Other
  Country: US (occurrence: US)
  Receive Date: 20230102
  Receipt Date: 20230102
  Transmission Date: 20230418
  Serious: Yes (Other)
  Sender: FDA-Public Use
  Company Number: US-NPI-000005

PATIENT
  Age: 8 Year
  Sex: Male

DRUGS (2)
  1. NEOSTIGMINE METHYLSULFATE [Suspect]
     Active Substance: NEOSTIGMINE METHYLSULFATE
     Indication: Neuromuscular blockade
     Route: 065
  2. GLYCOPYRROLATE [Suspect]
     Active Substance: GLYCOPYRROLATE
     Indication: Neuromuscular blockade
     Route: 065

REACTIONS (1)
  - Accelerated idioventricular rhythm [Recovered/Resolved]
